FAERS Safety Report 7030739-3 (Version None)
Quarter: 2010Q4

REPORT INFORMATION
  Report Type: 
  Country: None (occurrence: None)
  Receive Date: 20101006
  Receipt Date: 20100825
  Transmission Date: 20110411
  Serious: No
  Sender: FDA-Public Use
  Company Number: US-BAYER-201020542BCC

PATIENT
  Sex: Female

DRUGS (5)
  1. ALEVE (CAPLET) [Suspect]
     Indication: PRODUCT USED FOR UNKNOWN INDICATION
     Route: 048
  2. PRIMADON [Concomitant]
  3. TEGRETOL [Concomitant]
  4. ESTROGEN [Concomitant]
  5. BONE PILL [Concomitant]

REACTIONS (1)
  - CONFUSIONAL STATE [None]
